FAERS Safety Report 25135067 (Version 2)
Quarter: 2025Q1

REPORT INFORMATION
  Report Type: Spontaneous
  Country: US (occurrence: US)
  Receive Date: 20250328
  Receipt Date: 20250328
  Transmission Date: 20250408
  Serious: No
  Sender: PFIZER
  Company Number: US-PFIZER INC-PV202400124648

PATIENT
  Age: 68 Year
  Sex: Male

DRUGS (6)
  1. TUKYSA [Suspect]
     Active Substance: TUCATINIB
     Indication: Breast cancer metastatic
     Dosage: TWO 150MG TABLETS TWICE DAILY
     Route: 048
     Dates: start: 202409, end: 202502
  2. TUKYSA [Suspect]
     Active Substance: TUCATINIB
     Dosage: 300 MG, 2X/DAY
     Route: 048
     Dates: start: 202502
  3. TYLENOL [Concomitant]
     Active Substance: ACETAMINOPHEN
  4. CAPECITABINE [Concomitant]
     Active Substance: CAPECITABINE
  5. OGIVRI [Concomitant]
     Active Substance: TRASTUZUMAB-DKST
     Dates: end: 20241226
  6. NEULASTA [Concomitant]
     Active Substance: PEGFILGRASTIM
     Dates: start: 20241031, end: 20241205

REACTIONS (6)
  - White blood cell count decreased [Unknown]
  - Platelet count decreased [Unknown]
  - Haemoglobin decreased [Unknown]
  - Neutrophil count decreased [Unknown]
  - Skin mass [Unknown]
  - Off label use [Unknown]

NARRATIVE: CASE EVENT DATE: 20240101
